FAERS Safety Report 6808917-5 (Version None)
Quarter: 2010Q2

REPORT INFORMATION
  Report Type: 
  Country: None (occurrence: None)
  Receive Date: 20100630
  Receipt Date: 20091116
  Transmission Date: 20101027
  Serious: No
  Sender: FDA-Public Use
  Company Number: US-PFIZER INC-2009277181

PATIENT
  Sex: Male
  Weight: 95.2 kg

DRUGS (10)
  1. VIAGRA [Suspect]
     Indication: ERECTILE DYSFUNCTION
     Dosage: 100 MG, AS NEEDED
     Route: 048
  2. CELEBREX [Concomitant]
     Dosage: 200 MG, UNK
  3. ACETYLSALICYLIC ACID [Concomitant]
     Dosage: UNK
  4. DIOVAN HCT [Concomitant]
     Dosage: UNK
  5. LEUKINE [Concomitant]
     Dosage: UNK
  6. LEVOXYL [Concomitant]
     Dosage: UNK
  7. CALCITRIOL [Concomitant]
     Dosage: 0.5 UG, UNK
  8. FOSAMAX [Concomitant]
     Dosage: 70 MG, CYCLIC
  9. EVISTA [Concomitant]
     Dosage: UNK
  10. AVODART [Concomitant]
     Dosage: UNK

REACTIONS (1)
  - DRUG INEFFECTIVE [None]
